FAERS Safety Report 16551900 (Version 3)
Quarter: 2021Q2

REPORT INFORMATION
  Report Type: Spontaneous
  Country: CA (occurrence: CA)
  Receive Date: 20190710
  Receipt Date: 20210521
  Transmission Date: 20210716
  Serious: Yes (Death, Other)
  Sender: FDA-Public Use
  Company Number: CA-PFIZER INC-2018361502

PATIENT
  Age: 64 Year
  Sex: Female

DRUGS (9)
  1. DEXILANT [Concomitant]
     Active Substance: DEXLANSOPRAZOLE
     Dosage: UNK
  2. FUROSEMIDE. [Concomitant]
     Active Substance: FUROSEMIDE
     Dosage: UNK
  3. HYDROMORPH [Concomitant]
     Active Substance: HYDROMORPHONE
     Dosage: UNK
  4. AMITRIPTYLINE [Concomitant]
     Active Substance: AMITRIPTYLINE
     Dosage: UNK
  5. REVATIO [Suspect]
     Active Substance: SILDENAFIL CITRATE
     Indication: PULMONARY HYPERTENSION
     Dosage: 20 MG, UNK
     Route: 048
     Dates: start: 20180930
  6. POTASSIUM [Concomitant]
     Active Substance: POTASSIUM
     Dosage: UNK
  7. LORAZEPAM. [Concomitant]
     Active Substance: LORAZEPAM
     Dosage: UNK
  8. IRON [Concomitant]
     Active Substance: IRON
     Dosage: UNK
  9. SENOKOT [Concomitant]
     Active Substance: SENNOSIDES
     Dosage: UNK

REACTIONS (4)
  - Off label use [Unknown]
  - Product use in unapproved indication [Unknown]
  - Death [Fatal]
  - Ascites [Unknown]

NARRATIVE: CASE EVENT DATE: 20190711
